FAERS Safety Report 16526918 (Version 4)
Quarter: 2019Q4

REPORT INFORMATION
  Report Type: Report from Study
  Country: DE (occurrence: DE)
  Receive Date: 20190703
  Receipt Date: 20191002
  Transmission Date: 20200122
  Serious: Yes (Hospitalization, Other)
  Sender: FDA-Public Use
  Company Number: PHHY2019DE110683

PATIENT
  Age: 77 Year
  Sex: Male
  Weight: 131 kg

DRUGS (8)
  1. TAMSULOSIN [Concomitant]
     Active Substance: TAMSULOSIN
     Indication: BENIGN PROSTATIC HYPERPLASIA
     Dosage: 0.4 MG, QD (1-0-0)
     Route: 065
  2. EXJADE [Suspect]
     Active Substance: DEFERASIROX
     Dosage: 2 DF (5.5 MG/KG BODYWEIGHT/DAY = 2 TABLETS A 360 MG), QD
     Route: 065
     Dates: start: 20190522
  3. DICLOFENAC [Concomitant]
     Active Substance: DICLOFENAC
     Indication: PRODUCT USED FOR UNKNOWN INDICATION
     Route: 065
  4. FUROSEMID [Concomitant]
     Active Substance: FUROSEMIDE
     Indication: OEDEMA PERIPHERAL
     Dosage: 20 MG, QD (1-0-0)
     Route: 065
  5. EXJADE [Suspect]
     Active Substance: DEFERASIROX
     Indication: MYELODYSPLASTIC SYNDROME
     Dosage: 2 DF (5.5 MG/KG BODYWEIGHT/DAY = 2 TABLETS 360 MG), QD
     Route: 065
     Dates: start: 20181217, end: 20190411
  6. BISOHEXAL [Concomitant]
     Active Substance: BISOPROLOL FUMARATE
     Indication: HYPERTENSION
     Dosage: 0.5 MG, QD (1-0-0)
     Route: 065
  7. EXJADE [Suspect]
     Active Substance: DEFERASIROX
     Dosage: 5.5 MG/KG BODYWEIGHT/DAY=2 TABLETS A 360 MG
     Route: 065
     Dates: start: 20190425, end: 20190505
  8. VALPROIC ACID. [Suspect]
     Active Substance: VALPROIC ACID
     Indication: PRODUCT USED FOR UNKNOWN INDICATION
     Dosage: 300 DF, TID
     Route: 048
     Dates: start: 20190730, end: 20190815

REACTIONS (10)
  - Pulmonary arterial hypertension [Recovering/Resolving]
  - Pulmonary congestion [Recovering/Resolving]
  - Palpitations [Unknown]
  - Gastritis erosive [Recovered/Resolved]
  - Duodenal ulcer [Recovered/Resolved]
  - Gout [Recovered/Resolved]
  - Hiatus hernia [Unknown]
  - Melaena [Recovered/Resolved]
  - Dizziness [Recovered/Resolved]
  - Diarrhoea [Recovered/Resolved]

NARRATIVE: CASE EVENT DATE: 20190326
